FAERS Safety Report 8119127-6 (Version None)
Quarter: 2012Q1

REPORT INFORMATION
  Report Type: 
  Country: None (occurrence: None)
  Receive Date: 20120202
  Receipt Date: 20120125
  Transmission Date: 20120608
  Serious: Yes (Life-Threatening, Hospitalization, Other)
  Sender: FDA-Public Use
  Company Number: CL-376-2012

PATIENT
  Age: 87 Year

DRUGS (2)
  1. AMIODARONE HCL [Suspect]
     Indication: ATRIAL FIBRILLATION
     Dosage: UNK UNK UNK
  2. CIPROFLOXACIN [Suspect]
     Indication: URINARY TRACT INFECTION
     Dosage: 400MG BD INTRAVENOUS
     Route: 042

REACTIONS (3)
  - CARDIAC ARREST [None]
  - TORSADE DE POINTES [None]
  - DRUG INTERACTION [None]
